FAERS Safety Report 4491868-1 (Version None)
Quarter: 2004Q4

REPORT INFORMATION
  Report Type: 
  Country: None (occurrence: None)
  Receive Date: 20041028
  Receipt Date: 20041028
  Transmission Date: 20050328
  Serious: Yes (Life-Threatening, Hospitalization)
  Sender: FDA-Public Use
  Company Number: None

PATIENT
  Sex: Male
  Weight: 65 kg

DRUGS (5)
  1. ABELCET [Suspect]
     Indication: ANTIFUNGAL PROPHYLAXIS
     Dosage: IV QD (GIVEN ONCE)
     Route: 042
     Dates: start: 20041022
  2. ZOSYN [Concomitant]
  3. VANCOMYCIN [Concomitant]
  4. TOBRAMYCIN [Concomitant]
  5. CYCLOSPORINE [Concomitant]

REACTIONS (4)
  - ANURIA [None]
  - BLOOD CREATININE INCREASED [None]
  - CHILLS [None]
  - INFUSION RELATED REACTION [None]
